FAERS Safety Report 5035496-8 (Version None)
Quarter: 2006Q2

REPORT INFORMATION
  Report Type: 
  Country: None (occurrence: None)
  Receive Date: 20060526
  Receipt Date: 20060410
  Transmission Date: 20061013
  Serious: No
  Sender: FDA-Public Use
  Company Number: FABR-11473

PATIENT
  Age: 49 Year
  Sex: Male
  Weight: 63.05 kg

DRUGS (3)
  1. FABRAZYME [Suspect]
     Indication: FABRY'S DISEASE
     Dosage: SEE IMAGE
     Route: 042
     Dates: start: 20020913, end: 20040108
  2. LABETALOL HCL [Concomitant]
  3. NORVASC [Concomitant]

REACTIONS (1)
  - ARTHRALGIA [None]
